FAERS Safety Report 5270441-1 (Version None)
Quarter: 2007Q1

REPORT INFORMATION
  Report Type: 
  Country: None (occurrence: None)
  Receive Date: 20070320
  Receipt Date: 20070309
  Transmission Date: 20070707
  Serious: Yes (Hospitalization)
  Sender: FDA-Public Use
  Company Number: FR-PFIZER INC-2007019407

PATIENT
  Age: 6 Year
  Sex: Female

DRUGS (3)
  1. GENOTONORM [Suspect]
  2. LEVOCARNITINE [Concomitant]
  3. MERCAPTAMINE BITARTRATE [Concomitant]

REACTIONS (1)
  - MUSCULAR WEAKNESS [None]
